FAERS Safety Report 18712815 (Version 3)
Quarter: 2021Q2

REPORT INFORMATION
  Report Type: Spontaneous
  Country: US (occurrence: US)
  Receive Date: 20210107
  Receipt Date: 20210413
  Transmission Date: 20210717
  Serious: Yes (Other)
  Sender: FDA-Public Use
  Company Number: US-PFIZER INC-2017011979

PATIENT
  Age: 67 Year
  Sex: Female
  Weight: 64.85 kg

DRUGS (1)
  1. LYRICA [Suspect]
     Active Substance: PREGABALIN
     Indication: DIABETIC NEUROPATHY
     Dosage: 600 MG, 1X/DAY (300 MG STRENGTH CAPSULE TWO AT BEDTIME/ 1 CAPSULE BY ORAL ROUTE 2 TIMES EVERY DAY)
     Route: 048

REACTIONS (5)
  - Off label use [Unknown]
  - Limb discomfort [Unknown]
  - Product use issue [Unknown]
  - Intentional product misuse [Unknown]
  - Wound [Unknown]
